FAERS Safety Report 19266991 (Version 4)
Quarter: 2021Q3

REPORT INFORMATION
  Report Type: Spontaneous
  Country: AT (occurrence: AT)
  Receive Date: 20210517
  Receipt Date: 20210928
  Transmission Date: 20211014
  Serious: Yes (Life-Threatening, Hospitalization, Other)
  Sender: FDA-Public Use
  Company Number: AT-AMGEN-AUTSP2021070373

PATIENT
  Age: 80 Year
  Sex: Female
  Weight: 84.8 kg

DRUGS (13)
  1. NPLATE [Suspect]
     Active Substance: ROMIPLOSTIM
     Dosage: 700 MICROGRAM
     Route: 058
     Dates: start: 202009
  2. NPLATE [Suspect]
     Active Substance: ROMIPLOSTIM
     Dosage: 750 MICROGRAM
     Route: 058
     Dates: start: 202009
  3. PREDNISOLON [PREDNISOLONE] [Concomitant]
     Active Substance: PREDNISOLONE
     Dosage: 75 MILLIGRAM, QD
  4. NPLATE [Suspect]
     Active Substance: ROMIPLOSTIM
     Dosage: 780?800 MICROGRAM, QWK
     Route: 058
     Dates: start: 202009, end: 202104
  5. PREDNISOLON [PREDNISOLONE] [Concomitant]
     Active Substance: PREDNISOLONE
     Indication: IMMUNE THROMBOCYTOPENIA
     Dosage: 50 MILLIGRAM
     Dates: start: 20200602
  6. NPLATE [Suspect]
     Active Substance: ROMIPLOSTIM
     Dosage: 300 MICROGRAM
     Route: 058
     Dates: start: 20200718
  7. PREDNISOLON [PREDNISOLONE] [Concomitant]
     Active Substance: PREDNISOLONE
     Dosage: 10 MILLIGRAM, QD
  8. NPLATE [Suspect]
     Active Substance: ROMIPLOSTIM
     Dosage: 200 MICROGRAM, QWK
     Route: 058
  9. NPLATE [Suspect]
     Active Substance: ROMIPLOSTIM
     Dosage: 880 MICROGRAM
     Route: 058
     Dates: start: 20210408
  10. NPLATE [Suspect]
     Active Substance: ROMIPLOSTIM
     Indication: IMMUNE THROMBOCYTOPENIA
     Dosage: 100 MICROGRAM
     Route: 058
     Dates: start: 20200602
  11. NPLATE [Suspect]
     Active Substance: ROMIPLOSTIM
     Dosage: 500 MICROGRAM
     Route: 058
     Dates: start: 202007
  12. NPLATE [Suspect]
     Active Substance: ROMIPLOSTIM
     Dosage: 900 MICROGRAM, QWK
     Route: 058
     Dates: start: 20210429
  13. PREDNISOLON [PREDNISOLONE] [Concomitant]
     Active Substance: PREDNISOLONE
     Dosage: 25 MILLIGRAM, QD
     Dates: start: 20210429

REACTIONS (3)
  - Immune thrombocytopenia [Not Recovered/Not Resolved]
  - Epistaxis [Unknown]
  - Urinary tract infection [Recovered/Resolved]

NARRATIVE: CASE EVENT DATE: 20200717
